FAERS Safety Report 6460788-5 (Version None)
Quarter: 2009Q4

REPORT INFORMATION
  Report Type: 
  Country: None (occurrence: None)
  Receive Date: 20091125
  Receipt Date: 20091125
  Transmission Date: 20100525
  Serious: Yes (Hospitalization)
  Sender: FDA-Public Use
  Company Number: None

PATIENT
  Age: 81 Year
  Sex: Male

DRUGS (1)
  1. ETODOLAC [Suspect]
     Indication: PAIN
     Dosage: 600 MG EVERY DAY PO
     Route: 048
     Dates: start: 20090820, end: 20091119

REACTIONS (5)
  - ANAEMIA [None]
  - DIVERTICULUM [None]
  - DUODENITIS [None]
  - GASTRIC HAEMORRHAGE [None]
  - RECTAL HAEMORRHAGE [None]
